FAERS Safety Report 14934571 (Version 1)
Quarter: 2018Q2

REPORT INFORMATION
  Report Type: Report from Study
  Country: US (occurrence: US)
  Receive Date: 20180524
  Receipt Date: 20180524
  Transmission Date: 20180711
  Serious: Yes (Other)
  Sender: FDA-Public Use
  Company Number: US-NAPPMUNDI-USA-2018-0143679

PATIENT
  Sex: Male

DRUGS (2)
  1. OXYCODONE HYDROCHLORIDE. [Suspect]
     Active Substance: OXYCODONE HYDROCHLORIDE
     Dosage: 40 MG, TID
     Route: 048
     Dates: start: 19990101
  2. OXYCODONE HYDROCHLORIDE. [Suspect]
     Active Substance: OXYCODONE HYDROCHLORIDE
     Indication: PRODUCT USED FOR UNKNOWN INDICATION
     Dosage: 40 MG, TID
     Route: 048
     Dates: start: 2013

REACTIONS (7)
  - Cervical vertebral fracture [Unknown]
  - Off label use [Unknown]
  - Road traffic accident [Unknown]
  - Spinal operation [Unknown]
  - Brain operation [Unknown]
  - Seizure [Unknown]
  - Arthropathy [Unknown]

NARRATIVE: CASE EVENT DATE: 19990101
